FAERS Safety Report 7541715-6 (Version None)
Quarter: 2011Q2

REPORT INFORMATION
  Report Type: 
  Country: None (occurrence: None)
  Receive Date: 20110613
  Receipt Date: 20110608
  Transmission Date: 20111010
  Serious: Yes (Hospitalization, Other)
  Sender: FDA-Public Use
  Company Number: US-PFIZER INC-2011024767

PATIENT
  Sex: Female

DRUGS (3)
  1. LISINOPRIL [Concomitant]
     Indication: HYPERTENSION
     Dosage: UNK
     Dates: start: 20080101
  2. CHANTIX [Suspect]
     Indication: SMOKING CESSATION THERAPY
     Dosage: UNK
     Dates: start: 20090601, end: 20090901
  3. SIMVASTATIN [Concomitant]
     Indication: BLOOD CHOLESTEROL INCREASED
     Dosage: UNK
     Dates: start: 20080101

REACTIONS (10)
  - PARANOIA [None]
  - DIZZINESS [None]
  - DEPRESSION [None]
  - PHOTOPHOBIA [None]
  - FATIGUE [None]
  - HOSTILITY [None]
  - MALAISE [None]
  - CONVULSION [None]
  - ANXIETY [None]
  - AGGRESSION [None]
